FAERS Safety Report 5729499-5 (Version None)
Quarter: 2008Q2

REPORT INFORMATION
  Report Type: 
  Country: None (occurrence: None)
  Receive Date: 20080506
  Receipt Date: 20080425
  Transmission Date: 20081010
  Serious: Yes (Hospitalization)
  Sender: FDA-Public Use
  Company Number: US-ELI_LILLY_AND_COMPANY-US200804006499

PATIENT
  Sex: Female
  Weight: 117.91 kg

DRUGS (5)
  1. BYETTA [Suspect]
     Indication: TYPE 2 DIABETES MELLITUS
     Dosage: 5 UG, 2/D
     Route: 058
     Dates: start: 20060101
  2. BYETTA [Suspect]
     Dosage: 10 UG, 2/D
     Route: 058
  3. GLUCOPHAGE [Concomitant]
     Route: 048
  4. AMARYL [Concomitant]
     Route: 048
  5. SYNTHROID [Concomitant]
     Route: 048

REACTIONS (5)
  - ARTHRITIS [None]
  - DEPRESSED MOOD [None]
  - NAUSEA [None]
  - WEIGHT DECREASED [None]
  - WEIGHT INCREASED [None]
